FAERS Safety Report 5446015-6 (Version None)
Quarter: 2007Q3

REPORT INFORMATION
  Report Type: 
  Country: None (occurrence: None)
  Receive Date: 20070907
  Receipt Date: 20070829
  Transmission Date: 20080115
  Serious: Yes (Other)
  Sender: FDA-Public Use
  Company Number: US-JNJFOC-20070802070

PATIENT
  Sex: Male
  Weight: 74.84 kg

DRUGS (2)
  1. REMICADE [Suspect]
     Indication: ANKYLOSING SPONDYLITIS
     Route: 042
  2. MOTRIN [Concomitant]

REACTIONS (1)
  - PULMONARY TUBERCULOSIS [None]
